FAERS Safety Report 13031302 (Version 3)
Quarter: 2016Q4

REPORT INFORMATION
  Report Type: Spontaneous
  Country: CA (occurrence: CA)
  Receive Date: 20161215
  Receipt Date: 20161220
  Transmission Date: 20170207
  Serious: Yes (Death, Other)
  Sender: FDA-Public Use
  Company Number: CA-GLAXOSMITHKLINE-CA2016GSK075843

PATIENT
  Age: 64 Year
  Sex: Female
  Weight: 62 kg

DRUGS (3)
  1. CORTISONE [Suspect]
     Active Substance: CORTISONE\HYDROCORTISONE
     Indication: PRODUCT USED FOR UNKNOWN INDICATION
     Dosage: UNK
  2. NUCALA [Suspect]
     Active Substance: MEPOLIZUMAB
     Dosage: UNK
     Route: 058
     Dates: end: 20161116
  3. NUCALA [Suspect]
     Active Substance: MEPOLIZUMAB
     Indication: ASTHMA
     Dosage: 100 MG, Z
     Route: 058
     Dates: start: 20160427, end: 20161116

REACTIONS (25)
  - Rhinorrhoea [Unknown]
  - Heart rate increased [Unknown]
  - Drug ineffective [Unknown]
  - Oropharyngeal pain [Unknown]
  - Somnolence [Unknown]
  - Death [Fatal]
  - Headache [Unknown]
  - Lacrimation increased [Unknown]
  - Asthma [Unknown]
  - Oxygen saturation decreased [Unknown]
  - Sinusitis [Recovering/Resolving]
  - Productive cough [Unknown]
  - Dyspnoea [Unknown]
  - Cyanosis [Unknown]
  - Throat irritation [Unknown]
  - Aphonia [Unknown]
  - Sputum discoloured [Unknown]
  - Viral infection [Unknown]
  - Skin disorder [Unknown]
  - Infection [Unknown]
  - Fall [Unknown]
  - Sleep disorder [Unknown]
  - Eye infection [Unknown]
  - Joint injury [Unknown]
  - Fatigue [Unknown]

NARRATIVE: CASE EVENT DATE: 20160427
